FAERS Safety Report 23733450 (Version 1)
Quarter: 2024Q2

REPORT INFORMATION
  Report Type: Spontaneous
  Country: FR (occurrence: FR)
  Receive Date: 20240411
  Receipt Date: 20240411
  Transmission Date: 20240716
  Serious: Yes (Other)
  Sender: FDA-Public Use
  Company Number: None

PATIENT
  Age: 54 Year
  Sex: Male

DRUGS (8)
  1. PACLITAXEL [Suspect]
     Active Substance: PACLITAXEL
     Indication: Lung cancer metastatic
     Dosage: C2
     Route: 042
     Dates: start: 20240228, end: 20240228
  2. CIMETIDINE [Suspect]
     Active Substance: CIMETIDINE
     Indication: Chemotherapy side effect prophylaxis
     Route: 048
     Dates: start: 20240228, end: 20240228
  3. APREPITANT [Concomitant]
     Active Substance: APREPITANT
     Indication: Product used for unknown indication
     Dosage: C2
     Route: 048
     Dates: start: 20240228, end: 20240228
  4. POLARAMINE [Concomitant]
     Active Substance: DEXCHLORPHENIRAMINE MALEATE
     Indication: Product used for unknown indication
     Dosage: C2
     Route: 042
     Dates: start: 20240228, end: 20240228
  5. ONDANSETRON [Concomitant]
     Active Substance: ONDANSETRON
     Indication: Product used for unknown indication
     Dosage: C2
     Route: 042
     Dates: start: 20240228, end: 20240228
  6. PEMBROLIZUMAB [Concomitant]
     Active Substance: PEMBROLIZUMAB
     Indication: Product used for unknown indication
     Dosage: C2 UNK
     Route: 042
     Dates: start: 20240228, end: 20240228
  7. DEXAMETHASONE [Concomitant]
     Active Substance: DEXAMETHASONE
     Indication: Product used for unknown indication
     Dosage: C2
     Route: 042
     Dates: start: 20240228, end: 20240228
  8. ACLASTA [Concomitant]
     Active Substance: ZOLEDRONIC ACID
     Indication: Product used for unknown indication
     Dosage: UNK  C2
     Route: 042
     Dates: start: 20240228, end: 20240228

REACTIONS (1)
  - Anaphylactic reaction [Recovered/Resolved]

NARRATIVE: CASE EVENT DATE: 20240228
